FAERS Safety Report 21163589 (Version 1)
Quarter: 2022Q3

REPORT INFORMATION
  Report Type: Spontaneous
  Country: CA (occurrence: CA)
  Receive Date: 20220802
  Receipt Date: 20220802
  Transmission Date: 20221027
  Serious: Yes (Hospitalization, Other)
  Sender: FDA-Public Use
  Company Number: CA-JNJFOC-20220754341

PATIENT
  Age: 71 Year
  Sex: Female
  Weight: 85 kg

DRUGS (20)
  1. REMICADE [Suspect]
     Active Substance: INFLIXIMAB
     Indication: Psoriatic arthropathy
     Route: 041
  2. ASPIRIN [Suspect]
     Active Substance: ASPIRIN
     Indication: Product used for unknown indication
     Route: 065
  3. ATORVASTATIN CALCIUM [Concomitant]
     Active Substance: ATORVASTATIN CALCIUM
  4. CYMBALTA [Concomitant]
     Active Substance: DULOXETINE HYDROCHLORIDE
  5. DOMPERIDONE [Concomitant]
     Active Substance: DOMPERIDONE
     Route: 067
  6. LEVOTHYROXINE [Concomitant]
     Active Substance: LEVOTHYROXINE
  7. ESCITALOPRAM [Concomitant]
     Active Substance: ESCITALOPRAM OXALATE
  8. EZETIMIBE [Concomitant]
     Active Substance: EZETIMIBE
  9. FOLIC ACID [Concomitant]
     Active Substance: FOLIC ACID
  10. HYDROCHLOROTHIAZIDE [Concomitant]
     Active Substance: HYDROCHLOROTHIAZIDE
  11. INSULIN ASPART [Concomitant]
     Active Substance: INSULIN ASPART
  12. METHOTREXATE [Concomitant]
     Active Substance: METHOTREXATE
  13. PANTOPRAZOLE SODIUM [Concomitant]
     Active Substance: PANTOPRAZOLE SODIUM
  14. PREGABALIN [Concomitant]
     Active Substance: PREGABALIN
  15. RAMIPRIL [Concomitant]
     Active Substance: RAMIPRIL
  16. SALAGEN [Concomitant]
     Active Substance: PILOCARPINE HYDROCHLORIDE
  17. SENOKOT [Concomitant]
     Active Substance: SENNOSIDES
  18. SIMETHICONE (DIMETHICONE) [Concomitant]
     Active Substance: DIMETHICONE
  19. DILTIAZEM HYDROCHLORIDE [Concomitant]
     Active Substance: DILTIAZEM HYDROCHLORIDE
  20. TRESIBA [Concomitant]
     Active Substance: INSULIN DEGLUDEC

REACTIONS (6)
  - Thrombosis [Unknown]
  - Limb mass [Unknown]
  - Crohn^s disease [Unknown]
  - Skin cancer [Unknown]
  - Rash papular [Unknown]
  - Urinary tract infection [Unknown]
